FAERS Safety Report 25923390 (Version 1)
Quarter: 2025Q4

REPORT INFORMATION
  Report Type: Spontaneous
  Country: CN (occurrence: CN)
  Receive Date: 20251015
  Receipt Date: 20251015
  Transmission Date: 20260117
  Serious: Yes (Other)
  Sender: AUROBINDO
  Company Number: CN-MLMSERVICE-20250926-PI658888-00194-1

PATIENT
  Age: 64 Year
  Sex: Female

DRUGS (12)
  1. LETROZOLE [Suspect]
     Active Substance: LETROZOLE
     Indication: Breast cancer stage IV
     Dosage: SIX MONTHS
     Route: 065
     Dates: start: 2023
  2. LETROZOLE [Suspect]
     Active Substance: LETROZOLE
     Indication: Metastases to rectum
  3. LETROZOLE [Suspect]
     Active Substance: LETROZOLE
     Indication: Metastases to stomach
  4. LETROZOLE [Suspect]
     Active Substance: LETROZOLE
     Indication: Metastases to uterus
  5. LETROZOLE [Suspect]
     Active Substance: LETROZOLE
     Indication: Metastases to breast
  6. LETROZOLE [Suspect]
     Active Substance: LETROZOLE
     Indication: Hormone receptor positive HER2 negative breast cancer
  7. DALPICICLIB [Suspect]
     Active Substance: DALPICICLIB
     Indication: Breast cancer stage IV
     Dosage: SIX MONTHS
     Route: 065
     Dates: start: 2023
  8. DALPICICLIB [Suspect]
     Active Substance: DALPICICLIB
     Indication: Metastases to rectum
  9. DALPICICLIB [Suspect]
     Active Substance: DALPICICLIB
     Indication: Metastases to stomach
  10. DALPICICLIB [Suspect]
     Active Substance: DALPICICLIB
     Indication: Metastases to uterus
  11. DALPICICLIB [Suspect]
     Active Substance: DALPICICLIB
     Indication: Cervix cancer metastatic
  12. DALPICICLIB [Suspect]
     Active Substance: DALPICICLIB
     Indication: Hormone receptor positive HER2 negative breast cancer

REACTIONS (2)
  - Leukopenia [Recovering/Resolving]
  - Thrombocytopenia [Recovering/Resolving]
